FAERS Safety Report 10223064 (Version 4)
Quarter: 2016Q1

REPORT INFORMATION
  Report Type: Report from Study
  Country: BR (occurrence: BR)
  Receive Date: 20140607
  Receipt Date: 20160209
  Transmission Date: 20160525
  Serious: Yes (Other)
  Sender: FDA-Public Use
  Company Number: PHHY2014BR066857

PATIENT
  Age: 52 Year
  Sex: Female
  Weight: 47 kg

DRUGS (6)
  1. EXJADE [Suspect]
     Active Substance: DEFERASIROX
     Indication: SICKLE CELL ANAEMIA
     Dosage: 3 DF QHS (225MG), AT NIGHT
     Route: 048
  2. FOLIC ACID. [Concomitant]
     Active Substance: FOLIC ACID
     Indication: ANAEMIA
     Dosage: 1 DF, DAILY
     Route: 048
  3. HYDREA [Concomitant]
     Active Substance: HYDROXYUREA
     Indication: PRODUCT USED FOR UNKNOWN INDICATION
     Dosage: UNK UKN, UNK
     Route: 065
  4. EXJADE [Suspect]
     Active Substance: DEFERASIROX
     Dosage: 2 DF QHS (500MG), AT NIGHT
     Route: 048
  5. INTERFERON [Concomitant]
     Active Substance: INTERFERON
     Indication: HEPATITIS C
     Dosage: 1 DF, QW
     Route: 065
  6. VITAMIN B COMPLEX NOS [Concomitant]
     Active Substance: CYANOCOBALAMIN\PYRIDOXINE HYDROCHLORIDE\RIBOFLAVIN\SODIUM PANTOTHENATE\THIAMINE HYDROCHLORIDE\VITAMIN B COMPLEX
     Indication: ANAEMIA
     Dosage: 1 DF, DAILY
     Route: 048

REACTIONS (19)
  - Anaemia [Recovered/Resolved]
  - Renal disorder [Unknown]
  - Hepatic steatosis [Recovering/Resolving]
  - Eating disorder [Recovered/Resolved]
  - Wrong technique in product usage process [Unknown]
  - Hepatomegaly [Recovering/Resolving]
  - Retching [Recovered/Resolved]
  - Malaise [Unknown]
  - Insomnia [Recovered/Resolved]
  - Compulsions [Recovered/Resolved]
  - Weight decreased [Recovered/Resolved]
  - Hyperthyroidism [Recovering/Resolving]
  - Skin ulcer [Recovering/Resolving]
  - Scar pain [Recovering/Resolving]
  - Throat irritation [Recovering/Resolving]
  - Cardiac murmur [Not Recovered/Not Resolved]
  - Pain in extremity [Recovered/Resolved]
  - Hepatic pain [Recovered/Resolved]
  - Immunoglobulins decreased [Recovered/Resolved]

NARRATIVE: CASE EVENT DATE: 20160119
